FAERS Safety Report 5841742-0 (Version None)
Quarter: 2008Q3

REPORT INFORMATION
  Report Type: 
  Country: None (occurrence: None)
  Receive Date: 20080731
  Receipt Date: 20080519
  Transmission Date: 20090109
  Serious: No
  Sender: FDA-Public Use
  Company Number: US200805004066

PATIENT
  Age: 50 Year
  Sex: Female

DRUGS (6)
  1. BYETTA [Suspect]
     Indication: TYPE 2 DIABETES MELLITUS
     Dosage: 5 UG, 2/D, SUBCUTANEOUS; 10 UG, EACH MORNING, SUBCUTANEOUS; 5 UG, EACH EVENING, SUBCUTANEOUS
     Route: 058
     Dates: start: 20080301, end: 20080401
  2. BYETTA [Suspect]
     Indication: TYPE 2 DIABETES MELLITUS
     Dosage: 5 UG, 2/D, SUBCUTANEOUS; 10 UG, EACH MORNING, SUBCUTANEOUS; 5 UG, EACH EVENING, SUBCUTANEOUS
     Route: 058
     Dates: start: 20080515
  3. BYETTA [Suspect]
     Indication: TYPE 2 DIABETES MELLITUS
     Dosage: 5 UG, 2/D, SUBCUTANEOUS; 10 UG, EACH MORNING, SUBCUTANEOUS; 5 UG, EACH EVENING, SUBCUTANEOUS
     Route: 058
     Dates: start: 20080515
  4. EXENATIDE 5MCG PEN, DISPOSABLE DEVICE (EXENATIDE PEN (5MCG)) PEN,DISPO [Concomitant]
  5. EXENATIDE 10MCG PEN, DISPOSABLE DEVICE (EXENATIDE PEN (10MCG)) PEN,DIS [Concomitant]
  6. GLIMEPIRIDE [Concomitant]

REACTIONS (4)
  - BLOOD GLUCOSE INCREASED [None]
  - FATIGUE [None]
  - IMPAIRED GASTRIC EMPTYING [None]
  - NAUSEA [None]
